FAERS Safety Report 25896640 (Version 1)
Quarter: 2025Q4

REPORT INFORMATION
  Report Type: Spontaneous
  Country: US (occurrence: None)
  Receive Date: 20251008
  Receipt Date: 20251008
  Transmission Date: 20260117
  Serious: Yes (Other)
  Sender: FDA-CTU
  Company Number: None

PATIENT
  Age: 55 Year
  Sex: Female

DRUGS (1)
  1. VUMERITY [Suspect]
     Active Substance: DIROXIMEL FUMARATE
     Indication: Plasma cell myeloma refractory
     Dosage: FREQUENCY : TWICE A DAY;?
     Route: 048
     Dates: start: 20250717, end: 20250930

REACTIONS (5)
  - Chest discomfort [None]
  - Flushing [None]
  - Muscle spasms [None]
  - Therapy change [None]
  - Drug ineffective [None]

NARRATIVE: CASE EVENT DATE: 20250930
